FAERS Safety Report 7039145-9 (Version None)
Quarter: 2010Q3

REPORT INFORMATION
  Report Type: 
  Country: None (occurrence: None)
  Receive Date: 20100927
  Receipt Date: 20100601
  Transmission Date: 20110219
  Serious: Yes (Hospitalization, Other)
  Sender: FDA-Public Use
  Company Number: US-WYE-H14758610

PATIENT
  Sex: Male
  Weight: 84.44 kg

DRUGS (8)
  1. TORISEL [Suspect]
     Indication: RENAL CANCER
     Dosage: 24MG AT UNKNOWN FREQUENCY
     Dates: start: 20100416, end: 20100416
  2. HYDROCODONE BITARTRATE + ACETAMINOPHEN [Concomitant]
  3. ROXICODONE [Concomitant]
  4. AMBIEN [Concomitant]
  5. MULTIVITAMINS (ASCORBIC ACID/ERGOCALCIFEROL/FOLIC ACID/NICOTINAMIDE/PA [Concomitant]
  6. PROPRANOLOL [Concomitant]
  7. PRILOSEC (OMEPRAZOLE) [Concomitant]
  8. OXYCONTIN [Concomitant]

REACTIONS (3)
  - ANAPHYLACTIC REACTION [None]
  - BACK PAIN [None]
  - NAUSEA [None]
